FAERS Safety Report 18004916 (Version 1)
Quarter: 2020Q3

REPORT INFORMATION
  Report Type: Spontaneous
  Country: US (occurrence: US)
  Receive Date: 20200709
  Receipt Date: 20200709
  Transmission Date: 20201103
  Serious: Yes (Other)
  Sender: FDA-Public Use
  Company Number: None

PATIENT
  Age: 65 Year
  Sex: Male
  Weight: 93 kg

DRUGS (6)
  1. ASCORBIC ACID 500MG PO DAILY [Concomitant]
     Dates: start: 20200630
  2. DEXAMETHASONE 6MG IV DAILY [Concomitant]
     Dates: start: 20200701
  3. RIFAXIMIN 550MG PO BID [Concomitant]
     Dates: start: 20200703
  4. LACTULOSE 20G PO Q6H [Concomitant]
     Dates: start: 20200703
  5. ZINC SULFATE 220MG PO DAILY [Concomitant]
     Dates: start: 20200630
  6. REMDESIVIR. [Suspect]
     Active Substance: REMDESIVIR
     Indication: COVID-19
     Dosage: ?          OTHER FREQUENCY:ONCE;?
     Route: 040
     Dates: start: 20200702, end: 20200703

REACTIONS (3)
  - Hepatic cirrhosis [None]
  - Hepatic steatosis [None]
  - Hyperlipidaemia [None]

NARRATIVE: CASE EVENT DATE: 20200703
